FAERS Safety Report 15651048 (Version 1)
Quarter: 2018Q4

REPORT INFORMATION
  Report Type: Spontaneous
  Country: TR (occurrence: TR)
  Receive Date: 20181123
  Receipt Date: 20181123
  Transmission Date: 20190205
  Serious: Yes (Other)
  Sender: FDA-Public Use
  Company Number: TR-INVENTIA-000254

PATIENT
  Age: 60 Year
  Sex: Male

DRUGS (2)
  1. DULOXETINE. [Suspect]
     Active Substance: DULOXETINE
     Indication: FIBROMYALGIA
  2. DEXKETOPROFEN/DEXKETOPROFEN TROMETAMOL [Concomitant]

REACTIONS (1)
  - Tardive dyskinesia [Recovered/Resolved]
